FAERS Safety Report 22009197 (Version 4)
Quarter: 2023Q2

REPORT INFORMATION
  Report Type: Report from Study
  Country: US (occurrence: US)
  Receive Date: 20230220
  Receipt Date: 20230401
  Transmission Date: 20230722
  Serious: No
  Sender: FDA-Public Use
  Company Number: US-002147023-NVSC2023US038410

PATIENT
  Sex: Female

DRUGS (1)
  1. PIQRAY [Suspect]
     Active Substance: ALPELISIB
     Indication: Product used for unknown indication
     Dosage: UNK
     Route: 065

REACTIONS (6)
  - Dizziness [Unknown]
  - Gastrooesophageal reflux disease [Unknown]
  - Oral pain [Unknown]
  - Taste disorder [Unknown]
  - Nausea [Unknown]
  - Dry mouth [Unknown]
